FAERS Safety Report 17890785 (Version 1)
Quarter: 2020Q2

REPORT INFORMATION
  Report Type: Spontaneous
  Country: DK (occurrence: DK)
  Receive Date: 20200612
  Receipt Date: 20200612
  Transmission Date: 20200714
  Serious: Yes (Other)
  Sender: FDA-Public Use
  Company Number: NVSC2020DK163725

PATIENT
  Age: 67 Year
  Sex: Male

DRUGS (2)
  1. XARELTO [Concomitant]
     Active Substance: RIVAROXABAN
     Indication: THROMBOSIS PROPHYLAXIS
     Dosage: 20 MG, QD (STYRKE: 20 MG)
     Route: 048
     Dates: start: 20150305
  2. AMIODARONE [Suspect]
     Active Substance: AMIODARONE
     Indication: ARRHYTHMIA
     Dosage: 200 MG, QD (STRYKE: 200 MG)
     Route: 048
     Dates: start: 2015, end: 20180619

REACTIONS (3)
  - Hyperthyroidism [Recovered/Resolved]
  - Iodine uptake decreased [Unknown]
  - Goitre [Unknown]

NARRATIVE: CASE EVENT DATE: 2018
